FAERS Safety Report 22234932 (Version 1)
Quarter: 2023Q2

REPORT INFORMATION
  Report Type: Spontaneous
  Country: US (occurrence: None)
  Receive Date: 20230419
  Receipt Date: 20230419
  Transmission Date: 20230721
  Serious: Yes (Other)
  Sender: FDA-Public Use
  Company Number: None

PATIENT
  Age: 65 Year
  Sex: 0
  Weight: 111.6 kg

DRUGS (1)
  1. RITUXAN [Suspect]
     Active Substance: RITUXIMAB
     Route: 042

REACTIONS (3)
  - Urticaria [None]
  - Oropharyngeal pain [None]
  - Infusion related reaction [None]

NARRATIVE: CASE EVENT DATE: 20230419
